FAERS Safety Report 12957690 (Version 1)
Quarter: 2016Q4

REPORT INFORMATION
  Report Type: Other
  Country: None (occurrence: RO)
  Receive Date: 20161119
  Receipt Date: 20161119
  Transmission Date: 20170207
  Serious: Yes (Other)
  Sender: FDA-Public Use
  Company Number: RO-HETERO LABS LTD-1059796

PATIENT
  Sex: Female

DRUGS (2)
  1. EFAVIRENZ [Suspect]
     Active Substance: EFAVIRENZ
     Indication: HIV INFECTION
  2. LAMIVUDINE AND ZIDOVUDINE [Suspect]
     Active Substance: LAMIVUDINE\ZIDOVUDINE

REACTIONS (4)
  - Lipodystrophy acquired [Recovering/Resolving]
  - Neuropathy peripheral [Recovering/Resolving]
  - Sleep disorder [Not Recovered/Not Resolved]
  - Nightmare [Recovering/Resolving]
